FAERS Safety Report 14151755 (Version 2)
Quarter: 2018Q1

REPORT INFORMATION
  Report Type: Report from Study
  Country: None (occurrence: US)
  Receive Date: 20171102
  Receipt Date: 20180323
  Transmission Date: 20180508
  Serious: Yes (Hospitalization, Other)
  Sender: FDA-Public Use
  Company Number: US-ABBVIE-17K-163-2055582-00

PATIENT
  Age: 68 Year
  Sex: Male

DRUGS (3)
  1. METHOTREXATE. [Concomitant]
     Active Substance: METHOTREXATE
     Indication: RHEUMATOID ARTHRITIS
     Route: 048
     Dates: end: 2015
  2. HUMIRA [Suspect]
     Active Substance: ADALIMUMAB
     Route: 058
     Dates: start: 201508, end: 2015
  3. HUMIRA [Suspect]
     Active Substance: ADALIMUMAB
     Indication: RHEUMATOID ARTHRITIS
     Route: 058

REACTIONS (33)
  - Dizziness [Unknown]
  - Supraventricular extrasystoles [Unknown]
  - Peripheral swelling [Not Recovered/Not Resolved]
  - Wheezing [Unknown]
  - Drug ineffective [Unknown]
  - CSF white blood cell count positive [Unknown]
  - Dyspnoea [Unknown]
  - Nasopharyngitis [Unknown]
  - Cerebral atrophy [Unknown]
  - Cardiomegaly [Unknown]
  - Emphysema [Unknown]
  - Anaphylactic reaction [Unknown]
  - Immunodeficiency [Unknown]
  - Nasal congestion [Unknown]
  - Paraneoplastic syndrome [Unknown]
  - Hyperlipidaemia [Unknown]
  - Meningitis viral [Unknown]
  - Erectile dysfunction [Unknown]
  - Gastrooesophageal reflux disease [Unknown]
  - Ataxia [Unknown]
  - Herpes zoster [Unknown]
  - Arthralgia [Unknown]
  - Cholecystectomy [Unknown]
  - Meningitis aseptic [Unknown]
  - Encephalitis [Unknown]
  - Mitral valve incompetence [Unknown]
  - Sleep apnoea syndrome [Unknown]
  - Hypoacusis [Unknown]
  - Vertigo [Unknown]
  - Rash [Unknown]
  - Knee arthroplasty [Unknown]
  - Appendicectomy [Unknown]
  - Pleural effusion [Unknown]

NARRATIVE: CASE EVENT DATE: 2008
